FAERS Safety Report 8950754 (Version 2)
Quarter: 2012Q4

REPORT INFORMATION
  Report Type: 
  Country: BR (occurrence: BR)
  Receive Date: 20121207
  Receipt Date: 20121228
  Transmission Date: 20130627
  Serious: Yes (Death)
  Sender: FDA-Public Use
  Company Number: BR-GENZYME-FABR-1002899

PATIENT
  Age: 53 Year
  Sex: Male
  Weight: 60 kg

DRUGS (2)
  1. FABRAZYME [Suspect]
     Indication: FABRY^S DISEASE
     Dosage: 1 mg/kg, q15d
     Route: 042
     Dates: start: 20060516, end: 20121120
  2. PARACETAMOL [Concomitant]
     Indication: PREMEDICATION
     Dosage: 1 g, UNK
     Route: 048

REACTIONS (2)
  - Congestive cardiomyopathy [Fatal]
  - Acute myocardial infarction [Fatal]
